FAERS Safety Report 5397457-9 (Version None)
Quarter: 2007Q3

REPORT INFORMATION
  Report Type: 
  Country: None (occurrence: None)
  Receive Date: 20070726
  Receipt Date: 20070719
  Transmission Date: 20080115
  Serious: Yes (Other)
  Sender: FDA-Public Use
  Company Number: PHHO2007US11998

PATIENT
  Age: 54 Year
  Sex: Male

DRUGS (1)
  1. TELBIVUDINE [Suspect]
     Indication: HEPATITIS B
     Dosage: 600 MG, UNK
     Route: 048
     Dates: start: 20050817, end: 20070425

REACTIONS (1)
  - MYOPATHY [None]
